FAERS Safety Report 23695108 (Version 1)
Quarter: 2024Q2

REPORT INFORMATION
  Report Type: Report from Study
  Country: US (occurrence: US)
  Receive Date: 20240402
  Receipt Date: 20240402
  Transmission Date: 20240715
  Serious: Yes (Other)
  Sender: FDA-Public Use
  Company Number: US-DECIPHERA PHARMACEUTICALS LLC-2024US000257

PATIENT
  Age: 59 Year
  Sex: Male

DRUGS (2)
  1. QINLOCK [Suspect]
     Active Substance: RIPRETINIB
     Indication: Gastrointestinal stromal tumour
     Dosage: 100 MILLIGRAM, QD (ALTERNATE DOSING WITH 150 MG QD)
     Route: 048
     Dates: start: 20231201
  2. QINLOCK [Suspect]
     Active Substance: RIPRETINIB
     Dosage: 150 MILLIGRAM, QD (ALTERNATE DOSING WITH 100 MG QD)
     Route: 048
     Dates: start: 20231201

REACTIONS (3)
  - Parkinson^s disease [Unknown]
  - Dry skin [Unknown]
  - Hypertension [Unknown]
